FAERS Safety Report 24352265 (Version 2)
Quarter: 2024Q3

REPORT INFORMATION
  Report Type: Report from Study
  Country: CA (occurrence: CA)
  Receive Date: 20240923
  Receipt Date: 20240927
  Transmission Date: 20241016
  Serious: Yes (Other)
  Sender: BAUSCH AND LOMB
  Company Number: CA-BAUSCH-BL-2024-014037

PATIENT
  Age: 72 Year
  Sex: Female

DRUGS (4)
  1. SILIQ [Suspect]
     Active Substance: BRODALUMAB
     Indication: Psoriasis
     Dosage: 210 MG / 1.5 ML (WEEK 0 TO WEEK 2)
     Route: 058
     Dates: start: 20240628, end: 202407
  2. SILIQ [Suspect]
     Active Substance: BRODALUMAB
     Dosage: INDUCTION WEEKLY
     Route: 058
     Dates: start: 202407, end: 2024
  3. TELMISARTAN [Concomitant]
     Active Substance: TELMISARTAN
     Indication: Product used for unknown indication
  4. BISOPROLOL [Concomitant]
     Active Substance: BISOPROLOL\BISOPROLOL FUMARATE
     Indication: Product used for unknown indication

REACTIONS (5)
  - Vision blurred [Unknown]
  - Eye pain [Unknown]
  - Illness [Unknown]
  - Eye swelling [Unknown]
  - Visual impairment [Not Recovered/Not Resolved]

NARRATIVE: CASE EVENT DATE: 20240101
